FAERS Safety Report 7397088-5 (Version None)
Quarter: 2011Q2

REPORT INFORMATION
  Report Type: 
  Country: None (occurrence: None)
  Receive Date: 20110406
  Receipt Date: 20101022
  Transmission Date: 20111010
  Serious: Yes (Hospitalization)
  Sender: FDA-Public Use
  Company Number: A0889212A

PATIENT
  Sex: Female
  Weight: 74.1 kg

DRUGS (9)
  1. AVANDIA [Suspect]
     Dosage: 4MG TWICE PER DAY
     Route: 048
     Dates: start: 20040101, end: 20090603
  2. AVANDAMET [Suspect]
     Indication: DIABETES MELLITUS
     Route: 048
     Dates: start: 20040101
  3. COREG [Concomitant]
  4. CENESTIN [Concomitant]
  5. LASIX [Concomitant]
  6. NITROGLYCERIN [Concomitant]
  7. LOPID [Concomitant]
  8. METFORMIN [Concomitant]
  9. CELEXA [Concomitant]

REACTIONS (3)
  - BUNDLE BRANCH BLOCK LEFT [None]
  - ISCHAEMIC CARDIOMYOPATHY [None]
  - CARDIAC FAILURE CONGESTIVE [None]
